FAERS Safety Report 20099641 (Version 1)
Quarter: 2021Q4

REPORT INFORMATION
  Report Type: Spontaneous
  Country: US (occurrence: US)
  Receive Date: 20211123
  Receipt Date: 20211123
  Transmission Date: 20220303
  Serious: No
  Sender: FDA-Public Use
  Company Number: US-ORGANON-O2111USA002098

PATIENT
  Age: 19 Year
  Sex: Female
  Weight: 68.038 kg

DRUGS (1)
  1. NEXPLANON [Suspect]
     Active Substance: ETONOGESTREL
     Indication: Contraception
     Dosage: 1IMPLANT
     Dates: start: 20210112

REACTIONS (1)
  - Implant site urticaria [Unknown]

NARRATIVE: CASE EVENT DATE: 20211107
